FAERS Safety Report 9856894 (Version 2)
Quarter: 2014Q1

REPORT INFORMATION
  Report Type: Spontaneous
  Country: US (occurrence: US)
  Receive Date: 20140130
  Receipt Date: 20140328
  Transmission Date: 20141002
  Serious: Yes (Other)
  Sender: FDA-Public Use
  Company Number: US-TEVA-459274USA

PATIENT
  Age: 27 Year
  Sex: Female
  Weight: 71.73 kg

DRUGS (2)
  1. PARAGARD 380A [Suspect]
     Indication: CONTRACEPTION
     Route: 015
     Dates: start: 20131030, end: 20140127
  2. PARAGARD 380A [Suspect]
     Route: 015
     Dates: start: 20140127

REACTIONS (7)
  - Device dislocation [Recovered/Resolved]
  - Abdominal rigidity [Unknown]
  - Nausea [Unknown]
  - Vomiting [Unknown]
  - Metrorrhagia [Recovered/Resolved]
  - Muscle spasms [Recovered/Resolved]
  - Pelvic pain [Recovered/Resolved]
